FAERS Safety Report 8484631-8 (Version None)
Quarter: 2012Q3

REPORT INFORMATION
  Report Type: 
  Country: None (occurrence: None)
  Receive Date: 20120703
  Receipt Date: 20120402
  Transmission Date: 20120928
  Serious: Yes (Other)
  Sender: FDA-Public Use
  Company Number: US-TEVA-331709USA

PATIENT
  Age: 78 Year
  Sex: Male

DRUGS (2)
  1. PRAMIPEXOLE DIHYDROCHLORIDE [Concomitant]
  2. NUVIGIL [Suspect]
     Indication: PARKINSON'S DISEASE
     Dosage: 75 MILLIGRAM;
     Route: 048

REACTIONS (1)
  - MANIA [None]
